FAERS Safety Report 6500093-1 (Version None)
Quarter: 2009Q4

REPORT INFORMATION
  Report Type: 
  Country: None (occurrence: None)
  Receive Date: 20091216
  Receipt Date: 20091207
  Transmission Date: 20100525
  Serious: Yes (Other)
  Sender: FDA-Public Use
  Company Number: US-JNJFOC-20091008107

PATIENT
  Sex: Female
  Weight: 59.88 kg

DRUGS (2)
  1. REMICADE [Suspect]
     Route: 042
  2. REMICADE [Suspect]
     Indication: CROHN'S DISEASE
     Dosage: DOSE: 1 VIAL
     Route: 042

REACTIONS (3)
  - ADVERSE EVENT [None]
  - HYPERSENSITIVITY [None]
  - INFUSION RELATED REACTION [None]
